FAERS Safety Report 9138077 (Version 1)
Quarter: 2013Q1

REPORT INFORMATION
  Report Type: Spontaneous
  Country: US (occurrence: US)
  Receive Date: 20130304
  Receipt Date: 20130304
  Transmission Date: 20140127
  Serious: Yes (Death)
  Sender: FDA-Public Use
  Company Number: US-AMGEN-USASP2013012908

PATIENT
  Age: 46 Year
  Sex: Male

DRUGS (2)
  1. ETANERCEPT [Suspect]
     Indication: PSORIATIC ARTHROPATHY
     Dosage: 25 MG, 2 TIMES/WK
     Route: 058
     Dates: start: 200409
  2. ETANERCEPT [Suspect]
     Indication: PSORIASIS

REACTIONS (2)
  - Pancreatic carcinoma [Fatal]
  - Synovitis [Recovered/Resolved]
